FAERS Safety Report 6081648-8 (Version None)
Quarter: 2009Q1

REPORT INFORMATION
  Report Type: 
  Country: None (occurrence: None)
  Receive Date: 20090218
  Receipt Date: 20090216
  Transmission Date: 20090719
  Serious: Yes (Hospitalization)
  Sender: FDA-Public Use
  Company Number: GB-BAYER-200813451BNE

PATIENT

DRUGS (2)
  1. FLUDARA [Suspect]
     Indication: LEUKAEMIA
  2. MYELOTARG [Concomitant]
     Indication: LEUKAEMIA

REACTIONS (1)
  - DEMYELINATING POLYNEUROPATHY [None]
